FAERS Safety Report 20162072 (Version 1)
Quarter: 2021Q4

REPORT INFORMATION
  Report Type: Spontaneous
  Country: DE (occurrence: None)
  Receive Date: 20211208
  Receipt Date: 20211208
  Transmission Date: 20220303
  Serious: Yes (Hospitalization, Other)
  Sender: FDA-Public Use
  Company Number: DE-Merck Healthcare KGaA-9284673

PATIENT
  Age: 69 Year
  Sex: Male

DRUGS (2)
  1. AVELUMAB [Suspect]
     Active Substance: AVELUMAB
     Indication: Bladder transitional cell carcinoma
     Dates: start: 202106, end: 202106
  2. AVELUMAB [Suspect]
     Active Substance: AVELUMAB
     Dates: start: 202108, end: 2021

REACTIONS (3)
  - Metabolic acidosis [Unknown]
  - Nephritis [Unknown]
  - Disease progression [Unknown]

NARRATIVE: CASE EVENT DATE: 20210601
